FAERS Safety Report 6863729-1 (Version None)
Quarter: 2010Q3

REPORT INFORMATION
  Report Type: 
  Country: None (occurrence: None)
  Receive Date: 20100721
  Receipt Date: 20080306
  Transmission Date: 20110219
  Serious: Yes (Other)
  Sender: FDA-Public Use
  Company Number: US-PFIZER INC-2008022270

PATIENT
  Sex: Female
  Weight: 59 kg

DRUGS (2)
  1. CHANTIX [Suspect]
     Indication: SMOKING CESSATION THERAPY
     Route: 048
     Dates: start: 20080101
  2. ALBUTEROL [Concomitant]
     Indication: ASTHMA

REACTIONS (1)
  - DYSPNOEA [None]
